FAERS Safety Report 9847337 (Version 2)
Quarter: 2014Q1

REPORT INFORMATION
  Report Type: Spontaneous
  Country: JP (occurrence: JP)
  Receive Date: 20140127
  Receipt Date: 20140127
  Transmission Date: 20141002
  Serious: Yes (Hospitalization)
  Sender: FDA-Public Use
  Company Number: JP-BAXTER-2013BAX053185

PATIENT
  Sex: Male

DRUGS (1)
  1. DIANEAL-N PD-4 1.5 PD SOLUTION [Suspect]
     Indication: RENAL FAILURE CHRONIC
     Route: 033
     Dates: end: 20140110

REACTIONS (5)
  - Staphylococcal infection [Recovering/Resolving]
  - Catheter site infection [Recovering/Resolving]
  - Peritonitis bacterial [Recovering/Resolving]
  - Fluid retention [Recovering/Resolving]
  - Peritoneal dialysis complication [Recovered/Resolved]
